FAERS Safety Report 8456645-5 (Version None)
Quarter: 2012Q2

REPORT INFORMATION
  Report Type: 
  Country: None (occurrence: None)
  Receive Date: 20120621
  Receipt Date: 20120619
  Transmission Date: 20120825
  Serious: Yes (Death, Life-Threatening, Hospitalization)
  Sender: FDA-Public Use
  Company Number: US-ROCHE-756773

PATIENT
  Age: 64 Year
  Sex: Female
  Weight: 102 kg

DRUGS (3)
  1. PACLITAXEL [Suspect]
     Indication: OVARIAN EPITHELIAL CANCER
     Route: 042
     Dates: start: 20091203
  2. AVASTIN [Suspect]
     Indication: OVARIAN EPITHELIAL CANCER
     Route: 042
     Dates: start: 20091203
  3. CARBOPLATIN [Suspect]
     Indication: OVARIAN EPITHELIAL CANCER
     Route: 042
     Dates: start: 20091203

REACTIONS (8)
  - COLONIC FISTULA [None]
  - ABDOMINAL PAIN [None]
  - FATIGUE [None]
  - HYPONATRAEMIA [None]
  - SOFT TISSUE INFECTION [None]
  - HYPERMAGNESAEMIA [None]
  - HYPOALBUMINAEMIA [None]
  - DISEASE PROGRESSION [None]
